FAERS Safety Report 24843994 (Version 2)
Quarter: 2025Q1

REPORT INFORMATION
  Report Type: Spontaneous
  Country: US (occurrence: US)
  Receive Date: 20250115
  Receipt Date: 20250124
  Transmission Date: 20250409
  Serious: Yes (Other)
  Sender: ALEMBIC
  Company Number: US-ALEMBIC PHARMACUETICALS LIMITED-2025SCAL000001

PATIENT

DRUGS (4)
  1. LAMOTRIGINE [Suspect]
     Active Substance: LAMOTRIGINE
     Indication: Generalised tonic-clonic seizure
     Route: 048
     Dates: start: 20241027, end: 20250102
  2. LAMOTRIGINE [Suspect]
     Active Substance: LAMOTRIGINE
     Route: 048
  3. LAMOTRIGINE [Suspect]
     Active Substance: LAMOTRIGINE
     Route: 048
  4. LAMOTRIGINE [Suspect]
     Active Substance: LAMOTRIGINE
     Route: 048
     Dates: start: 20241208, end: 20250102

REACTIONS (18)
  - Stevens-Johnson syndrome [Recovered/Resolved]
  - Mouth ulceration [Recovered/Resolved]
  - Lip erythema [Recovered/Resolved]
  - Lip ulceration [Recovered/Resolved]
  - Red blood cell sedimentation rate increased [Unknown]
  - C-reactive protein increased [Unknown]
  - Choking [Recovered/Resolved]
  - Moaning [Recovered/Resolved]
  - Increased upper airway secretion [Recovered/Resolved]
  - Glassy eyes [Recovered/Resolved]
  - Eye movement disorder [Recovering/Resolving]
  - Fatigue [Recovered/Resolved]
  - Lethargy [Recovered/Resolved]
  - Pain [Recovered/Resolved]
  - Agitation [Recovered/Resolved]
  - Dysphagia [Recovered/Resolved]
  - Influenza like illness [Recovered/Resolved]
  - Photophobia [Recovering/Resolving]

NARRATIVE: CASE EVENT DATE: 20241208
